FAERS Safety Report 9917576 (Version 1)
Quarter: 2014Q1

REPORT INFORMATION
  Report Type: Spontaneous
  Country: DE (occurrence: FR)
  Receive Date: 20140221
  Receipt Date: 20140221
  Transmission Date: 20141002
  Serious: Yes (Other)
  Sender: FDA-Public Use
  Company Number: FR-FRI-1000054469

PATIENT
  Age: 83 Year
  Sex: Female
  Weight: 45 kg

DRUGS (5)
  1. MEMANTINE [Suspect]
     Dosage: 1 DF
     Route: 048
     Dates: start: 20140110, end: 20140110
  2. TRIATEC [Suspect]
     Dosage: 1 DF
     Route: 048
     Dates: start: 20140110, end: 20140110
  3. EXELON [Suspect]
     Route: 048
     Dates: start: 20140110, end: 20140110
  4. OKIMUS [Concomitant]
     Indication: MUSCLE SPASMS
  5. PROTELOS [Concomitant]
     Indication: OSTEOPOROSIS

REACTIONS (5)
  - Asthenia [Recovered/Resolved]
  - Vomiting [Recovered/Resolved]
  - Diarrhoea [Recovered/Resolved]
  - Wrong drug administered [Recovered/Resolved]
  - Medication error [Recovered/Resolved]
